FAERS Safety Report 17256365 (Version 1)
Quarter: 2020Q1

REPORT INFORMATION
  Report Type: Spontaneous
  Country: US (occurrence: US)
  Receive Date: 20200110
  Receipt Date: 20200110
  Transmission Date: 20200409
  Serious: Yes (Hospitalization)
  Sender: FDA-Public Use
  Company Number: US-ACTELION-A-CH2020-200048

PATIENT
  Age: 2 Year
  Sex: Female

DRUGS (8)
  1. OXYGEN. [Concomitant]
     Active Substance: OXYGEN
     Indication: PULMONARY HYPERTENSIVE CRISIS
     Route: 055
  2. OXYGEN. [Concomitant]
     Active Substance: OXYGEN
     Indication: HYPOXIA
  3. TRACLEER [Suspect]
     Active Substance: BOSENTAN
     Indication: PULMONARY ARTERIAL HYPERTENSION
     Route: 048
  4. GLEEVEC [Concomitant]
     Active Substance: IMATINIB MESYLATE
     Indication: PULMONARY VEIN STENOSIS
  5. SILDENAFIL. [Concomitant]
     Active Substance: SILDENAFIL
     Indication: PULMONARY ARTERIAL HYPERTENSION
  6. OXYGEN. [Concomitant]
     Active Substance: OXYGEN
     Indication: CONDITION AGGRAVATED
  7. OXYGEN. [Concomitant]
     Active Substance: OXYGEN
     Indication: PULMONARY ARTERIAL HYPERTENSION
  8. OXYGEN. [Concomitant]
     Active Substance: OXYGEN
     Indication: PULMONARY VASCULAR DISORDER

REACTIONS (5)
  - Concomitant disease aggravated [Unknown]
  - Respiratory tract infection [Unknown]
  - Pulmonary vascular disorder [Unknown]
  - Oxygen saturation decreased [Unknown]
  - Pulmonary hypertensive crisis [Unknown]
